FAERS Safety Report 6669696-8 (Version None)
Quarter: 2010Q2

REPORT INFORMATION
  Report Type: 
  Country: None (occurrence: None)
  Receive Date: 20100402
  Receipt Date: 20100324
  Transmission Date: 20101027
  Serious: Yes (Other)
  Sender: FDA-Public Use
  Company Number: 220003N10DEU

PATIENT
  Age: 14 Year
  Sex: Male
  Weight: 40.8 kg

DRUGS (1)
  1. SAIZEN [Suspect]
     Indication: BLOOD GROWTH HORMONE DECREASED
     Dosage: 0.9 MG, 1 IN 1 DAYS, INTRAMUSCULAR
     Route: 030
     Dates: start: 20090928, end: 20100321

REACTIONS (3)
  - ARTHRALGIA [None]
  - CHEST PAIN [None]
  - TENDON PAIN [None]
